FAERS Safety Report 6156877-5 (Version None)
Quarter: 2009Q2

REPORT INFORMATION
  Report Type: 
  Country: None (occurrence: None)
  Receive Date: 20090410
  Receipt Date: 20090410
  Transmission Date: 20091009
  Serious: No
  Sender: FDA-Public Use
  Company Number: None

PATIENT
  Age: 50 Year
  Sex: Female
  Weight: 71.6683 kg

DRUGS (7)
  1. CEFTRIAXONE [Suspect]
     Indication: OSTEOMYELITIS
     Dosage: 1 GRAM BOTTLE ONECE DAILY
  2. LEXAPRO [Concomitant]
  3. VICODIN [Concomitant]
  4. ZEGERID [Concomitant]
  5. LAMOTRIGINE [Concomitant]
  6. CLONAZEPAM [Concomitant]
  7. AMITIZA [Concomitant]

REACTIONS (5)
  - DIZZINESS [None]
  - EAR PAIN [None]
  - FATIGUE [None]
  - HEADACHE [None]
  - PAIN [None]
